FAERS Safety Report 21059218 (Version 1)
Quarter: 2022Q3

REPORT INFORMATION
  Report Type: Spontaneous
  Country: PT (occurrence: PT)
  Receive Date: 20220708
  Receipt Date: 20220708
  Transmission Date: 20221027
  Serious: Yes (Hospitalization, Other)
  Sender: FDA-Public Use
  Company Number: PT-AMGEN-PRTSP2022113013

PATIENT
  Age: 22 Year
  Sex: Female

DRUGS (6)
  1. DARBEPOETIN ALFA [Suspect]
     Active Substance: DARBEPOETIN ALFA
     Indication: Anaemia
     Route: 065
  2. IRON [Concomitant]
     Active Substance: IRON
     Route: 048
  3. VITAMIN B [Concomitant]
     Active Substance: VITAMIN B
  4. VITAMIN D [Concomitant]
     Active Substance: VITAMIN D NOS
  5. FOLIC ACID [Concomitant]
     Active Substance: FOLIC ACID
  6. PHOSPHORUS [Concomitant]
     Active Substance: PHOSPHORUS
     Route: 048

REACTIONS (4)
  - Preterm premature rupture of membranes [Unknown]
  - Hypertension [Unknown]
  - Premature delivery [Unknown]
  - Exposure during pregnancy [Unknown]
